FAERS Safety Report 21455231 (Version 1)
Quarter: 2022Q4

REPORT INFORMATION
  Report Type: Other
  Country: US (occurrence: US)
  Receive Date: 20221014
  Receipt Date: 20221014
  Transmission Date: 20230112
  Serious: Yes (Life-Threatening, Other)
  Sender: FDA-Public Use
  Company Number: US-Techdow-2022Techdow000001

PATIENT
  Age: 2 Month
  Sex: Male

DRUGS (1)
  1. HEPARIN SODIUM [Suspect]
     Active Substance: HEPARIN SODIUM
     Indication: Peripheral artery thrombosis

REACTIONS (2)
  - Cerebral venous sinus thrombosis [Unknown]
  - Haemorrhage intracranial [None]
